FAERS Safety Report 15920504 (Version 1)
Quarter: 2019Q1

REPORT INFORMATION
  Report Type: Report from Study
  Country: IT (occurrence: IT)
  Receive Date: 20190205
  Receipt Date: 20190205
  Transmission Date: 20190417
  Serious: Yes (Other)
  Sender: FDA-Public Use
  Company Number: IT-MYLANLABS-2019M1009893

PATIENT
  Age: 57 Year
  Sex: Female

DRUGS (6)
  1. XARELTO [Concomitant]
     Active Substance: RIVAROXABAN
     Indication: PULMONARY EMBOLISM
     Dosage: UNK
     Route: 048
  2. GABAPENTIN. [Concomitant]
     Active Substance: GABAPENTIN
     Dosage: UNK
  3. TRITTICO [Concomitant]
     Active Substance: TRAZODONE HYDROCHLORIDE
     Dosage: UNK
  4. PARACODINA                         /00063002/ [Suspect]
     Active Substance: ASPIRIN\CAFFEINE\DIHYDROCODEINE BITARTRATE
     Indication: COUGH
     Dosage: UNK
     Route: 048
     Dates: start: 20180714, end: 20180714
  5. DIAZEPAM. [Suspect]
     Active Substance: DIAZEPAM
     Indication: AGITATION
     Dosage: UNK
     Route: 048
     Dates: start: 20180714, end: 20180714
  6. TAVOR (LORAZEPAM) [Suspect]
     Active Substance: LORAZEPAM
     Indication: AGITATION
     Dosage: 4 DOSAGE FORM, TOTAL
     Route: 048
     Dates: start: 20180714, end: 20180714

REACTIONS (2)
  - Slow speech [Recovered/Resolved]
  - Drug abuse [Recovered/Resolved]

NARRATIVE: CASE EVENT DATE: 20180714
